FAERS Safety Report 21435404 (Version 1)
Quarter: 2022Q4

REPORT INFORMATION
  Report Type: Spontaneous
  Country: JP (occurrence: JP)
  Receive Date: 20221010
  Receipt Date: 20221010
  Transmission Date: 20230112
  Serious: Yes (Other)
  Sender: FDA-Public Use
  Company Number: JP-PFIZER INC-PV202200071629

PATIENT
  Age: 95 Year
  Sex: Female
  Weight: 48 kg

DRUGS (4)
  1. DEXMEDETOMIDINE HYDROCHLORIDE [Suspect]
     Active Substance: DEXMEDETOMIDINE HYDROCHLORIDE
     Indication: Sedation
     Dosage: 0.4 UG/KG/MIN
  2. BUPIVACAINE [Suspect]
     Active Substance: BUPIVACAINE
     Indication: Spinal anaesthesia
     Dosage: 12 MG
  3. PROPOFOL [Suspect]
     Active Substance: PROPOFOL
     Indication: Spinal anaesthesia
     Dosage: STARTED AT 1 UG/ML
  4. PROPOFOL [Suspect]
     Active Substance: PROPOFOL
     Dosage: 1.5 UG/ML

REACTIONS (1)
  - Myoclonus [Recovered/Resolved]
